FAERS Safety Report 16629369 (Version 1)
Quarter: 2019Q3

REPORT INFORMATION
  Report Type: Spontaneous
  Country: US (occurrence: US)
  Receive Date: 20190725
  Receipt Date: 20190725
  Transmission Date: 20191004
  Serious: Yes (Hospitalization)
  Sender: FDA-Public Use
  Company Number: US-HIKMA PHARMACEUTICALS USA INC.-US-H14001-19-04279

PATIENT
  Age: 50 Year
  Sex: Male

DRUGS (16)
  1. MESNA. [Suspect]
     Active Substance: MESNA
     Indication: ACUTE LYMPHOCYTIC LEUKAEMIA
     Dosage: REGIMEN A: DAILY OVER 24 HOURS FOR THREE DAYS ON DAYS 1-3
     Route: 042
  2. CYCLOPHOSPHAMIDE. [Suspect]
     Active Substance: CYCLOPHOSPHAMIDE
     Indication: ACUTE LYMPHOCYTIC LEUKAEMIA
     Dosage: REGIMEN A: OVER THREE HOURS TWICE A DAY ON DAYS 1-3
     Route: 042
  3. RITUXIMAB. [Suspect]
     Active Substance: RITUXIMAB
     Indication: ACUTE LYMPHOCYTIC LEUKAEMIA
     Dosage: REGIMEN A: ON DAY 2 AND DAY 8 OF CYCLES 1 AND 3
     Route: 042
  4. BLINATUMOMAB [Suspect]
     Active Substance: BLINATUMOMAB
     Indication: ACUTE LYMPHOCYTIC LEUKAEMIA
     Dosage: REGIMEN C: CONTINUOUS ON DAYS 1-4 (FIRST BLINATUMOMAB CYCLE ONLY)
     Route: 042
  5. BLINATUMOMAB [Suspect]
     Active Substance: BLINATUMOMAB
     Dosage: REGIMEN C: CONTINUOUS ON DAYS 4-29 (FIRST BLINATUMOMAB CYCLE ONLY)
     Route: 042
  6. PEGFILGRASTIM [Suspect]
     Active Substance: PEGFILGRASTIM
     Indication: ACUTE LYMPHOCYTIC LEUKAEMIA
     Dosage: REGIMEN A: ON DAY 4
     Route: 058
  7. DEXAMETHASONE. [Suspect]
     Active Substance: DEXAMETHASONE
     Route: 042
  8. METHOTREXATE SODIUM. [Suspect]
     Active Substance: METHOTREXATE SODIUM
     Dosage: REGIMEN B: OVER 22 HOURS ON DAY 1 OF CYCLES 2 AND 4
     Route: 042
  9. INOTUZUMAB OZOGAMICIN [Suspect]
     Active Substance: INOTUZUMAB OZOGAMICIN
     Dosage: REGIMEN B: OVER ONE HOUR ON DAYS 2 AND 8 OF CYCLES 2 AND 4
     Route: 042
  10. VINCRISTINE [Suspect]
     Active Substance: VINCRISTINE
     Indication: ACUTE LYMPHOCYTIC LEUKAEMIA
     Dosage: REGIMEN A: ON DAY 1 AND DAY 8 (APPROXIMATE)
     Route: 042
  11. RITUXIMAB. [Suspect]
     Active Substance: RITUXIMAB
     Dosage: REGIMEN B: ON DAY 2 AND DAY 8 OF CYCLES 2 AND 4
     Route: 042
  12. METHOTREXATE SODIUM. [Suspect]
     Active Substance: METHOTREXATE SODIUM
     Indication: ACUTE LYMPHOCYTIC LEUKAEMIA
     Dosage: REGIMEN B: OVER TWO HOURS ON DAY 1 OF CYCLES 2 AND 4 (AS NEEDED)
     Route: 042
  13. INOTUZUMAB OZOGAMICIN [Suspect]
     Active Substance: INOTUZUMAB OZOGAMICIN
     Indication: ACUTE LYMPHOCYTIC LEUKAEMIA
     Dosage: REGIMEN A: OVER ONE HOUR ON DAYS 2 AND 8 OF CYCLES 1 AND 3
     Route: 042
     Dates: start: 20190321
  14. DEXAMETHASONE. [Suspect]
     Active Substance: DEXAMETHASONE
     Indication: ACUTE LYMPHOCYTIC LEUKAEMIA
     Dosage: REGIMEN A: DAILY FOR 4 DAYS ON DAYS 1-4 AND DAYS 11-14 (APPROXIMATE)
     Route: 042
  15. DEXAMETHASONE. [Suspect]
     Active Substance: DEXAMETHASONE
     Route: 042
  16. CYTARABINE. [Suspect]
     Active Substance: CYTARABINE
     Indication: ACUTE LYMPHOCYTIC LEUKAEMIA
     Dosage: REGIMEN B: OVER THREE HOURS TWICE A DAY X 4 DOSES ON DAYS 2 AND 3
     Route: 042

REACTIONS (1)
  - Confusional state [Recovered/Resolved]

NARRATIVE: CASE EVENT DATE: 20190603
